FAERS Safety Report 24374393 (Version 3)
Quarter: 2025Q2

REPORT INFORMATION
  Report Type: Spontaneous
  Country: US (occurrence: US)
  Receive Date: 20240927
  Receipt Date: 20250611
  Transmission Date: 20250716
  Serious: Yes (Hospitalization, Other)
  Sender: PFIZER
  Company Number: US-PFIZER INC-202400264960

PATIENT
  Age: 69 Year
  Sex: Female

DRUGS (1)
  1. XELJANZ [Suspect]
     Active Substance: TOFACITINIB CITRATE

REACTIONS (19)
  - Abdominal pain upper [Unknown]
  - Back pain [Unknown]
  - Oral pain [Unknown]
  - Oropharyngeal pain [Unknown]
  - Musculoskeletal pain [Unknown]
  - Herpes zoster [Unknown]
  - Nephrolithiasis [Unknown]
  - Ulcer [Unknown]
  - Pneumonia [Unknown]
  - Poor quality sleep [Unknown]
  - Pain [Unknown]
  - Joint injury [Unknown]
  - Limb injury [Unknown]
  - Wound [Unknown]
  - Head injury [Unknown]
  - Malaise [Unknown]
  - Illness [Unknown]
  - Mental disorder [Unknown]
  - Bronchitis [Unknown]
